FAERS Safety Report 7399475-8 (Version None)
Quarter: 2011Q2

REPORT INFORMATION
  Report Type: 
  Country: None (occurrence: None)
  Receive Date: 20110407
  Receipt Date: 20110330
  Transmission Date: 20111010
  Serious: Yes (Death)
  Sender: FDA-Public Use
  Company Number: PHHY2011US27444

PATIENT
  Sex: Male
  Weight: 68.027 kg

DRUGS (1)
  1. EXJADE [Suspect]
     Indication: SICKLE CELL ANAEMIA
     Dosage: 750 MG, DAILY
     Route: 048
     Dates: start: 20060810, end: 20110315

REACTIONS (2)
  - RESPIRATORY FAILURE [None]
  - PULMONARY INFARCTION [None]
